FAERS Safety Report 6264392-3 (Version None)
Quarter: 2009Q3

REPORT INFORMATION
  Report Type: 
  Country: None (occurrence: None)
  Receive Date: 20090710
  Receipt Date: 20090703
  Transmission Date: 20100115
  Serious: Yes (Hospitalization)
  Sender: FDA-Public Use
  Company Number: B0582024A

PATIENT
  Sex: Female

DRUGS (6)
  1. ARIXTRA [Suspect]
     Dosage: 7.5MG PER DAY
     Route: 058
     Dates: start: 20090520, end: 20090601
  2. LEVOTHYROX [Concomitant]
     Indication: HYPOTHYROIDISM
     Dosage: 100MCG PER DAY
     Route: 048
  3. TAHOR [Concomitant]
     Dosage: 10MG PER DAY
     Route: 048
     Dates: start: 20090520
  4. FLECAINIDE ACETATE [Concomitant]
     Indication: ATRIAL FIBRILLATION
     Dosage: 100MG PER DAY
     Route: 048
  5. LEXOMIL [Concomitant]
     Indication: ANXIETY
     Route: 048
  6. NEXIUM [Concomitant]
     Dosage: 20MG PER DAY
     Route: 048
     Dates: start: 20090520

REACTIONS (4)
  - CONDITION AGGRAVATED [None]
  - NERVOUS SYSTEM DISORDER [None]
  - OVERDOSE [None]
  - SUBDURAL HAEMATOMA [None]
